FAERS Safety Report 4295445-7 (Version None)
Quarter: 2004Q1

REPORT INFORMATION
  Report Type: 
  Country: None (occurrence: None)
  Receive Date: 20040216
  Receipt Date: 20031212
  Transmission Date: 20041129
  Serious: Yes (Other)
  Sender: FDA-Public Use
  Company Number: GB-ROCHE-354240

PATIENT
  Age: 17 Year
  Sex: Male
  Weight: 50.3 kg

DRUGS (2)
  1. ROACCUTANE [Suspect]
     Indication: ACNE
     Route: 048
     Dates: start: 20000615
  2. EPILEM [Concomitant]
     Route: 048

REACTIONS (2)
  - KYPHOSIS [None]
  - OSTEOPOROSIS [None]
